FAERS Safety Report 7365907-4 (Version None)
Quarter: 2011Q1

REPORT INFORMATION
  Report Type: 
  Country: None (occurrence: None)
  Receive Date: 20110322
  Receipt Date: 20110316
  Transmission Date: 20110831
  Serious: Yes (Other)
  Sender: FDA-Public Use
  Company Number: US-AMGEN-USASP2011014578

PATIENT
  Age: 48 Year
  Sex: Male

DRUGS (2)
  1. ENBREL [Suspect]
     Indication: PSORIATIC ARTHROPATHY
     Dosage: 50 MG, QWK
     Dates: start: 20080101
  2. ENBREL [Suspect]
     Indication: PSORIASIS

REACTIONS (11)
  - FALL [None]
  - HYPOAESTHESIA [None]
  - BACK INJURY [None]
  - DRY EYE [None]
  - EYELIDS PRURITUS [None]
  - ERYTHEMA OF EYELID [None]
  - PSORIASIS [None]
  - EYELID IRRITATION [None]
  - HEADACHE [None]
  - NASOPHARYNGITIS [None]
  - IMPAIRED HEALING [None]
